FAERS Safety Report 23400459 (Version 2)
Quarter: 2024Q1

REPORT INFORMATION
  Report Type: Report from Study
  Country: DE (occurrence: DE)
  Receive Date: 20240115
  Receipt Date: 20240122
  Transmission Date: 20240409
  Serious: Yes (Hospitalization, Other)
  Sender: FDA-Public Use
  Company Number: DE-CELLTRION INC.-2024DE000565

PATIENT

DRUGS (4)
  1. HYRIMOZ [Suspect]
     Active Substance: ADALIMUMAB-ADAZ
     Indication: Psoriatic arthropathy
     Dosage: 40 MG
     Route: 065
     Dates: start: 20210806, end: 20211022
  2. HYRIMOZ [Suspect]
     Active Substance: ADALIMUMAB-ADAZ
     Dosage: 40 MG, Q2W (EVERY SECOND WEEK)
     Route: 065
     Dates: start: 20211119, end: 20220520
  3. ADALIMUMAB [Suspect]
     Active Substance: ADALIMUMAB\ISOPROPYL ALCOHOL
     Indication: Psoriatic arthropathy
     Dosage: 40 MG
     Route: 065
     Dates: start: 20210806, end: 20211022
  4. ADALIMUMAB [Suspect]
     Active Substance: ADALIMUMAB\ISOPROPYL ALCOHOL
     Dosage: 40 MG, Q2W (EVERY SECOND WEEK)
     Route: 065
     Dates: start: 20211119, end: 20220520

REACTIONS (11)
  - Psoriatic arthropathy [Recovered/Resolved]
  - Skin disorder [Recovered/Resolved]
  - Back pain [Recovered/Resolved]
  - Arthralgia [Recovered/Resolved]
  - Pneumonia [Unknown]
  - Diarrhoea [Unknown]
  - Joint effusion [Unknown]
  - Rhinitis [Unknown]
  - Oral herpes [Unknown]
  - Vomiting [Unknown]
  - Herpes zoster [Unknown]

NARRATIVE: CASE EVENT DATE: 20220415
